FAERS Safety Report 18679902 (Version 2)
Quarter: 2021Q1

REPORT INFORMATION
  Report Type: Report from Study
  Country: BR (occurrence: BR)
  Receive Date: 20201230
  Receipt Date: 20210112
  Transmission Date: 20210419
  Serious: Yes (Other)
  Sender: FDA-Public Use
  Company Number: BR-EMD SERONO-9209346

PATIENT
  Age: 26 Year
  Sex: Male

DRUGS (2)
  1. REBIF [Suspect]
     Active Substance: INTERFERON BETA-1A
     Indication: MULTIPLE SCLEROSIS
     Route: 058
     Dates: start: 20160603, end: 20190830
  2. BIO?MANGUINHOS BETAINTERFERONA 1A 44 MCG [Suspect]
     Active Substance: INTERFERON BETA-1A
     Indication: MULTIPLE SCLEROSIS
     Dosage: THERAPY START DATE: 01?SEP?2019
     Route: 058

REACTIONS (4)
  - Myopia [Unknown]
  - Product administration error [Recovered/Resolved]
  - Injection site erythema [Recovered/Resolved]
  - Optic neuritis [Not Recovered/Not Resolved]

NARRATIVE: CASE EVENT DATE: 201606
